FAERS Safety Report 18040981 (Version 1)
Quarter: 2020Q3

REPORT INFORMATION
  Report Type: Spontaneous
  Country: US (occurrence: US)
  Receive Date: 20200718
  Receipt Date: 20200718
  Transmission Date: 20201103
  Serious: Yes (Other)
  Sender: FDA-Public Use
  Company Number: US-PURDUE-USA-2020-0157788

PATIENT
  Sex: Male

DRUGS (2)
  1. OXYCODONE/ ACETAMINOPHEN TABLETS [Suspect]
     Active Substance: ACETAMINOPHEN\OXYCODONE HYDROCHLORIDE
     Indication: PRODUCT USED FOR UNKNOWN INDICATION
     Dosage: UNKNOWN
     Route: 064
  2. OXYCONTIN [Suspect]
     Active Substance: OXYCODONE HYDROCHLORIDE
     Indication: PRODUCT USED FOR UNKNOWN INDICATION
     Dosage: UNKNOWN
     Route: 064

REACTIONS (10)
  - Learning disability [Unknown]
  - Reactive attachment disorder of infancy or early childhood [Unknown]
  - Foetal exposure during pregnancy [Unknown]
  - Tremor [Unknown]
  - Developmental delay [Not Recovered/Not Resolved]
  - Attention deficit hyperactivity disorder [Not Recovered/Not Resolved]
  - Oppositional defiant disorder [Unknown]
  - Drug withdrawal syndrome neonatal [Unknown]
  - Disruptive mood dysregulation disorder [Unknown]
  - Behaviour disorder [Not Recovered/Not Resolved]
